FAERS Safety Report 4932553-9 (Version None)
Quarter: 2006Q1

REPORT INFORMATION
  Report Type: 
  Country: None (occurrence: None)
  Receive Date: 20060303
  Receipt Date: 20051104
  Transmission Date: 20060701
  Serious: Yes (Hospitalization, Other)
  Sender: FDA-Public Use
  Company Number: US-MERCK-0511USA01062

PATIENT
  Age: 54 Year
  Sex: Male
  Weight: 82 kg

DRUGS (2)
  1. VIOXX [Suspect]
     Indication: ARTHRALGIA
     Route: 048
     Dates: start: 20020326, end: 20040316
  2. DIOVAN [Concomitant]
     Indication: HYPERTENSION
     Route: 065
     Dates: start: 20030509, end: 20031105

REACTIONS (11)
  - ANGINA PECTORIS [None]
  - ANGINA UNSTABLE [None]
  - ARTERIOSCLEROSIS [None]
  - BACK PAIN [None]
  - BLOOD CHOLESTEROL INCREASED [None]
  - CEREBROVASCULAR ACCIDENT [None]
  - CHEST PAIN [None]
  - DYSPEPSIA [None]
  - GASTROOESOPHAGEAL REFLUX DISEASE [None]
  - MYOCARDIAL INFARCTION [None]
  - MYOCARDIAL ISCHAEMIA [None]
